FAERS Safety Report 18856684 (Version 3)
Quarter: 2022Q2

REPORT INFORMATION
  Report Type: Report from Study
  Country: ES (occurrence: ES)
  Receive Date: 20210207
  Receipt Date: 20220418
  Transmission Date: 20220721
  Serious: No
  Sender: FDA-Public Use
  Company Number: ES-TAKEDA-ES202025714

PATIENT
  Age: 37 Year
  Sex: Female

DRUGS (3)
  1. ICATIBANT [Suspect]
     Active Substance: ICATIBANT ACETATE
     Indication: Hereditary angioedema
     Dosage: UNK
     Route: 065
  2. ICATIBANT [Suspect]
     Active Substance: ICATIBANT ACETATE
     Indication: Hereditary angioedema
     Dosage: UNK
     Route: 065
  3. CYTOTEC [Concomitant]
     Active Substance: MISOPROSTOL
     Indication: Abortion
     Dosage: UNK UNK, QD
     Route: 050
     Dates: start: 20170315, end: 20170315

REACTIONS (2)
  - Pregnancy [Not Recovered/Not Resolved]
  - No adverse event [Unknown]
